FAERS Safety Report 10813504 (Version 1)
Quarter: 2015Q1

REPORT INFORMATION
  Report Type: Spontaneous
  Country: US (occurrence: US)
  Receive Date: 20150218
  Receipt Date: 20150218
  Transmission Date: 20150721
  Serious: No
  Sender: FDA-Public Use
  Company Number: US-PFIZER INC-2015060194

PATIENT
  Sex: Female

DRUGS (2)
  1. PERCOCET [Suspect]
     Active Substance: ACETAMINOPHEN\OXYCODONE HYDROCHLORIDE
     Indication: NECK PAIN
     Dosage: UNK
  2. NEURONTIN [Suspect]
     Active Substance: GABAPENTIN
     Indication: NECK PAIN
     Dosage: UNK

REACTIONS (3)
  - Product use issue [Unknown]
  - Feeling abnormal [Unknown]
  - Dizziness [Unknown]
